FAERS Safety Report 8470253-1 (Version None)
Quarter: 2012Q2

REPORT INFORMATION
  Report Type: 
  Country: None (occurrence: None)
  Receive Date: 20120627
  Receipt Date: 20120621
  Transmission Date: 20120825
  Serious: Yes (Other)
  Sender: FDA-Public Use
  Company Number: US-JNJFOC-20120607137

PATIENT
  Sex: Female
  Weight: 58.97 kg

DRUGS (9)
  1. DURAGESIC-100 [Suspect]
     Route: 062
  2. VITAMINS NOS [Concomitant]
     Indication: NUTRITIONAL SUPPORT
     Route: 065
  3. OXYCONTIN [Concomitant]
     Indication: PAIN
     Route: 048
  4. ZANAFLEX [Concomitant]
     Indication: MUSCLE SPASMS
     Route: 065
     Dates: start: 20060101
  5. IMITREX [Concomitant]
     Indication: MIGRAINE
     Dosage: AS NEEDED
     Route: 048
  6. CYMBALTA [Concomitant]
     Indication: FIBROMYALGIA
     Route: 048
     Dates: start: 20040101
  7. PERCOCET [Concomitant]
     Indication: BREAKTHROUGH PAIN
     Dosage: 100/325 MG AS NEEDED
     Route: 048
  8. DURAGESIC-100 [Suspect]
     Indication: BACK PAIN
     Route: 062
     Dates: start: 20020101
  9. ZYPREXA [Concomitant]
     Indication: DEPRESSION
     Route: 048
     Dates: start: 20020101

REACTIONS (10)
  - ATRIOVENTRICULAR BLOCK COMPLETE [None]
  - PAIN [None]
  - SYNCOPE [None]
  - DRUG EFFECT DECREASED [None]
  - PRODUCT QUALITY ISSUE [None]
  - FALL [None]
  - HYPERTENSION [None]
  - RESPIRATORY TRACT INFECTION [None]
  - SOMNOLENCE [None]
  - ARTHRALGIA [None]
